FAERS Safety Report 22353538 (Version 4)
Quarter: 2025Q2

REPORT INFORMATION
  Report Type: Spontaneous
  Country: FR (occurrence: FR)
  Receive Date: 20230523
  Receipt Date: 20250503
  Transmission Date: 20250716
  Serious: Yes (Death, Life-Threatening, Other)
  Sender: CELLTRION
  Company Number: FR-CELLTRION INC.-2023FR010388

PATIENT

DRUGS (9)
  1. RITUXIMAB [Suspect]
     Active Substance: RITUXIMAB
     Indication: Chronic active Epstein-Barr virus infection
     Route: 065
  2. CYCLOSPORINE [Suspect]
     Active Substance: CYCLOSPORINE
     Indication: Chronic active Epstein-Barr virus infection
     Route: 065
  3. CYCLOPHOSPHAMIDE\DOXORUBICIN\PREDNISONE\VINCRISTINE [Suspect]
     Active Substance: CYCLOPHOSPHAMIDE\DOXORUBICIN\PREDNISONE\VINCRISTINE
     Indication: Chronic active Epstein-Barr virus infection
  4. CYCLOPHOSPHAMIDE [Suspect]
     Active Substance: CYCLOPHOSPHAMIDE
     Indication: Chronic active Epstein-Barr virus infection
     Route: 065
  5. DOXORUBICIN [Suspect]
     Active Substance: DOXORUBICIN
     Indication: Chronic active Epstein-Barr virus infection
     Route: 065
  6. VINCRISTINE [Suspect]
     Active Substance: VINCRISTINE
     Indication: Chronic active Epstein-Barr virus infection
     Route: 065
  7. PREDNISONE [Suspect]
     Active Substance: PREDNISONE
     Indication: Chronic active Epstein-Barr virus infection
     Route: 065
  8. PEGINTERFERON ALFA-2A [Concomitant]
     Active Substance: PEGINTERFERON ALFA-2A
     Indication: Chronic active Epstein-Barr virus infection
  9. VINBLASTINE [Concomitant]
     Active Substance: VINBLASTINE
     Indication: Chronic active Epstein-Barr virus infection

REACTIONS (9)
  - Gastrointestinal haemorrhage [Fatal]
  - Multiple organ dysfunction syndrome [Fatal]
  - Condition aggravated [Unknown]
  - Chronic active Epstein-Barr virus infection [Not Recovered/Not Resolved]
  - Pneumocystis jirovecii pneumonia [Unknown]
  - Pneumonia staphylococcal [Unknown]
  - COVID-19 [Unknown]
  - Bronchopulmonary aspergillosis [Unknown]
  - Off label use [Unknown]
